FAERS Safety Report 21499670 (Version 1)
Quarter: 2022Q4

REPORT INFORMATION
  Report Type: Spontaneous
  Country: FR (occurrence: FR)
  Receive Date: 20221024
  Receipt Date: 20221024
  Transmission Date: 20230113
  Serious: Yes (Hospitalization, Other)
  Sender: FDA-Public Use
  Company Number: FR-TAKEDA-2022TUS075185

PATIENT
  Age: 23 Year
  Sex: Male

DRUGS (1)
  1. ADCETRIS [Suspect]
     Active Substance: BRENTUXIMAB VEDOTIN
     Indication: Hodgkin^s disease
     Dosage: UNK
     Route: 065

REACTIONS (8)
  - Acute polyneuropathy [Unknown]
  - Myelopathy [Unknown]
  - Paraplegia [Unknown]
  - Endocarditis [Unknown]
  - Cerebral artery embolism [Unknown]
  - Central nervous system vasculitis [Unknown]
  - CNS ventriculitis [Unknown]
  - Infection [Unknown]
